FAERS Safety Report 6774875-5 (Version None)
Quarter: 2010Q2

REPORT INFORMATION
  Report Type: 
  Country: None (occurrence: None)
  Receive Date: 20100617
  Receipt Date: 20100609
  Transmission Date: 20101027
  Serious: Yes (Hospitalization)
  Sender: FDA-Public Use
  Company Number: FR-B.I. PHARMACEUTICALS,INC./RIDGEFIELD-2010-BP-06767YA

PATIENT
  Sex: Male

DRUGS (5)
  1. TAMSULOSIN HCL [Suspect]
     Indication: BENIGN PROSTATIC HYPERPLASIA
     Route: 048
     Dates: start: 20091101
  2. TAMSULOSIN HCL [Suspect]
     Route: 048
     Dates: end: 20100109
  3. SEROPLEX [Suspect]
     Indication: DEPRESSION
     Route: 048
     Dates: start: 20090701, end: 20100114
  4. RYTHMOL [Concomitant]
     Indication: ARRHYTHMIA
  5. SELOKEN (METOPROLOL TARTATE) [Concomitant]
     Indication: ARRHYTHMIA

REACTIONS (1)
  - CYTOLYTIC HEPATITIS [None]
